FAERS Safety Report 25398651 (Version 3)
Quarter: 2025Q3

REPORT INFORMATION
  Report Type: Report from Study
  Country: US (occurrence: US)
  Receive Date: 20250604
  Receipt Date: 20250707
  Transmission Date: 20251021
  Serious: Yes (Hospitalization)
  Sender: MALLINCKRODT
  Company Number: US-MALLINCKRODT-MNK202503289

PATIENT
  Age: 33 Year
  Sex: Female
  Weight: 198 kg

DRUGS (3)
  1. CORTICOTROPIN [Suspect]
     Active Substance: CORTICOTROPIN
     Indication: Rheumatoid arthritis
     Route: 058
     Dates: start: 20250526
  2. CORTICOTROPIN [Suspect]
     Active Substance: CORTICOTROPIN
     Dates: start: 202506
  3. ADDERALL [Concomitant]
     Active Substance: AMPHETAMINE ASPARTATE\AMPHETAMINE SULFATE\DEXTROAMPHETAMINE SACCHARATE\DEXTROAMPHETAMINE SULFATE

REACTIONS (5)
  - Arrhythmia [Unknown]
  - Blood potassium decreased [Unknown]
  - Injection site pruritus [Recovered/Resolved]
  - Injection site erythema [Recovered/Resolved]
  - Injection site swelling [Unknown]

NARRATIVE: CASE EVENT DATE: 20250101
